FAERS Safety Report 20652356 (Version 1)
Quarter: 2022Q1

REPORT INFORMATION
  Report Type: Spontaneous
  Country: IE (occurrence: IE)
  Receive Date: 20220330
  Receipt Date: 20220330
  Transmission Date: 20220423
  Serious: Yes (Life-Threatening, Other)
  Sender: FDA-Public Use
  Company Number: None

PATIENT
  Age: 14 Year
  Sex: Female

DRUGS (22)
  1. CLONAZEPAM [Suspect]
     Active Substance: CLONAZEPAM
     Indication: Anxiety
     Dosage: 0.5 MG,BID (EVERY 12 HOUR)
     Route: 048
     Dates: start: 20200620, end: 20200627
  2. FLUOXETINE [Suspect]
     Active Substance: FLUOXETINE HYDROCHLORIDE
     Indication: Anxiety
     Dosage: 20 MG, DAILY (PROZAC CAPSULES 20 MG, TWO IN THE MORNING. (ON THAT DOSE FOR APPROX. 8 MONTHS))
     Route: 048
     Dates: start: 20200227, end: 20201101
  3. FLUOXETINE [Suspect]
     Active Substance: FLUOXETINE HYDROCHLORIDE
     Indication: Anxiety
     Dosage: 20 MG, DAILY (FLUZAC 20 MG, TWO CAPSULES IN THE MORNING)
     Route: 048
  4. FLUOXETINE [Suspect]
     Active Substance: FLUOXETINE HYDROCHLORIDE
     Indication: Anxiety
     Dosage: 20 MG, DAILY (PROZAMEL 20 MG, TWO CAPSULES IN THE MORNING)
     Route: 048
  5. ARIPIPRAZOLE [Concomitant]
     Active Substance: ARIPIPRAZOLE
     Dosage: UNK
     Route: 048
     Dates: start: 20190717
  6. ARIPIPRAZOLE [Concomitant]
     Active Substance: ARIPIPRAZOLE
     Dosage: 5 MG (ONE TABLET TWICE DAILY A A HALF TABLET AT NIGHT)
     Route: 048
     Dates: start: 20191109
  7. ARIPIPRAZOLE [Concomitant]
     Active Substance: ARIPIPRAZOLE
     Dosage: UNK
     Route: 065
     Dates: start: 20200131, end: 20200519
  8. CONCERTA [Concomitant]
     Active Substance: METHYLPHENIDATE HYDROCHLORIDE
     Dosage: 18 MG, DAILY (IN THE MORNING)
     Route: 065
     Dates: start: 20200124
  9. CONCERTA [Concomitant]
     Active Substance: METHYLPHENIDATE HYDROCHLORIDE
     Dosage: 36 MG, DAILY
     Route: 065
     Dates: start: 20200228
  10. CONCERTA [Concomitant]
     Active Substance: METHYLPHENIDATE HYDROCHLORIDE
     Dosage: 36 MG, DAILY (IN THE MORNING)
     Route: 065
     Dates: start: 20200602
  11. CONCERTA [Concomitant]
     Active Substance: METHYLPHENIDATE HYDROCHLORIDE
     Dosage: 27 MG, DAILY (IN THE MORNING)
     Route: 065
     Dates: start: 20200616
  12. MELATONIN [Concomitant]
     Active Substance: MELATONIN
     Dosage: 2 MG, DAILY (AT NIGHT)
     Route: 048
     Dates: start: 20191217
  13. Ponstan/Mefac [Concomitant]
     Dosage: UNK,
     Route: 065
     Dates: start: 20200114
  14. Zalasta/Olanzapine Teva [Concomitant]
     Dosage: ZALASTA/OLANZAPINE TEVA: 2.5 MG IN THE MORNING, 5 MG AT 5 PM
     Route: 048
     Dates: start: 20200630
  15. LISDEXAMFETAMINE DIMESYLATE [Concomitant]
     Active Substance: LISDEXAMFETAMINE DIMESYLATE
     Dosage: UNK, DAILY (IN THE MORNING)
     Route: 065
     Dates: start: 20200623
  16. LISDEXAMFETAMINE DIMESYLATE [Concomitant]
     Active Substance: LISDEXAMFETAMINE DIMESYLATE
     Dosage: UNK, DAILY (IN THE MORNING)
     Route: 065
     Dates: start: 20200710
  17. LISDEXAMFETAMINE DIMESYLATE [Concomitant]
     Active Substance: LISDEXAMFETAMINE DIMESYLATE
     Dosage: UNK, DAILY (IN THE MORNING)
     Route: 065
     Dates: start: 20200722
  18. LISDEXAMFETAMINE DIMESYLATE [Concomitant]
     Active Substance: LISDEXAMFETAMINE DIMESYLATE
     Dosage: UNK, DAILY (IN THE MORNING)
     Route: 065
     Dates: start: 20201109
  19. LISDEXAMFETAMINE DIMESYLATE [Concomitant]
     Active Substance: LISDEXAMFETAMINE DIMESYLATE
     Dosage: UNK
     Route: 065
     Dates: start: 20210401
  20. ALTAVITA D3 [Concomitant]
     Dosage: 25000 IU, EVERY TWO WEEKS
     Route: 065
     Dates: start: 20191204
  21. ALTAVITA D3 [Concomitant]
     Dosage: 25000 IU, MONTHLY
     Route: 065
     Dates: start: 20200131
  22. ALTAVITA D3 [Concomitant]
     Dosage: 25000 IU, EVERY 2 WEEK
     Route: 065
     Dates: start: 20200224

REACTIONS (2)
  - Intentional self-injury [Not Recovered/Not Resolved]
  - Judgement impaired [Not Recovered/Not Resolved]

NARRATIVE: CASE EVENT DATE: 20200621
